FAERS Safety Report 19122709 (Version 3)
Quarter: 2021Q2

REPORT INFORMATION
  Report Type: Spontaneous
  Country: US (occurrence: US)
  Receive Date: 20210412
  Receipt Date: 20210617
  Transmission Date: 20210717
  Serious: Yes (Hospitalization, Other)
  Sender: FDA-Public Use
  Company Number: US-ACCORD-222399

PATIENT
  Age: 52 Year
  Sex: Female
  Weight: 98.43 kg

DRUGS (3)
  1. OXALIPLATIN. [Suspect]
     Active Substance: OXALIPLATIN
     Indication: COLON CANCER METASTATIC
     Dosage: ON DAY 1, EVERY 21 DAYS
     Route: 041
     Dates: start: 20190925, end: 20200212
  2. OXALIPLATIN. [Suspect]
     Active Substance: OXALIPLATIN
     Indication: COLON CANCER METASTATIC
     Dosage: ON DAY 1, EVERY 21 DAYS
     Route: 041
     Dates: start: 20190925, end: 20200212
  3. CAPECITABINE. [Concomitant]
     Active Substance: CAPECITABINE
     Indication: COLON CANCER METASTATIC
     Dosage: TWICE DAILY ON DAYS 1?14, EVERY?21 DAYS (CAPOX).
     Route: 048
     Dates: start: 20190925

REACTIONS (11)
  - Paraesthesia [Recovered/Resolved]
  - Motor dysfunction [Recovered/Resolved]
  - Freezing phenomenon [Recovered/Resolved]
  - Grip strength decreased [Recovered/Resolved]
  - Tremor [Recovered/Resolved]
  - Speech disorder [Recovered/Resolved]
  - Muscle spasms [Recovered/Resolved]
  - Cold dysaesthesia [Recovered/Resolved]
  - Condition aggravated [Recovered/Resolved]
  - Blepharospasm [Recovered/Resolved]
  - Visual impairment [Recovered/Resolved]

NARRATIVE: CASE EVENT DATE: 2019
